FAERS Safety Report 4948739-3 (Version None)
Quarter: 2006Q1

REPORT INFORMATION
  Report Type: 
  Country: None (occurrence: None)
  Receive Date: 20060317
  Receipt Date: 20060308
  Transmission Date: 20060701
  Serious: Yes (Hospitalization)
  Sender: FDA-Public Use
  Company Number: 2005BI012399

PATIENT
  Age: 70 Year
  Sex: Female

DRUGS (5)
  1. AVONEX [Suspect]
     Indication: MULTIPLE SCLEROSIS
     Dosage: 30 UG;QW;IM
     Route: 030
     Dates: start: 20000805, end: 20030819
  2. AVONEX [Suspect]
     Indication: MULTIPLE SCLEROSIS
     Dosage: 30 UG;QW;IM
     Route: 030
     Dates: start: 20030827, end: 20050618
  3. METFORMIN [Concomitant]
  4. LOVASTATIN [Concomitant]
  5. ASPIRIN [Concomitant]

REACTIONS (11)
  - ABDOMINAL DISTENSION [None]
  - ASCITES [None]
  - DECREASED APPETITE [None]
  - DYSPNOEA [None]
  - HEPATIC LESION [None]
  - MALIGNANT OMENTUM NEOPLASM [None]
  - METASTASES TO SMALL INTESTINE [None]
  - METASTATIC NEOPLASM [None]
  - OEDEMA PERIPHERAL [None]
  - OVARIAN EPITHELIAL CANCER STAGE IV [None]
  - PLEURAL EFFUSION [None]
